FAERS Safety Report 8124702-9 (Version None)
Quarter: 2012Q1

REPORT INFORMATION
  Report Type: 
  Country: None (occurrence: None)
  Receive Date: 20120209
  Receipt Date: 20120131
  Transmission Date: 20120608
  Serious: Yes (Death, Hospitalization)
  Sender: FDA-Public Use
  Company Number: IT-MPIJNJ-2011-04450

PATIENT

DRUGS (7)
  1. ARANESP [Concomitant]
     Dosage: UNK
     Dates: start: 20110704, end: 20110819
  2. DEXAMETHASONE [Concomitant]
     Indication: MULTIPLE MYELOMA
     Dosage: UNK
     Dates: start: 20110627, end: 20110906
  3. OMEPRAZOLE [Concomitant]
     Indication: GASTROINTESTINAL DISORDER
     Dosage: 20 MG, UNK
     Route: 065
  4. VELCADE [Suspect]
     Indication: MULTIPLE MYELOMA
     Dosage: 1.8 MG, UNK
     Dates: start: 20110627, end: 20110906
  5. ACYCLOVIR [Concomitant]
     Indication: HERPES ZOSTER
     Dosage: 400 MG, UNK
     Route: 065
  6. DURAGESIC-100 [Concomitant]
     Indication: PAIN
     Dosage: 100 MG, UNK
     Route: 065
  7. ZOLOFT [Concomitant]
     Indication: DEPRESSION
     Route: 065

REACTIONS (1)
  - PULMONARY FIBROSIS [None]
